FAERS Safety Report 9016238 (Version 1)
Quarter: 2013Q1

REPORT INFORMATION
  Report Type: Spontaneous
  Country: FR (occurrence: FR)
  Receive Date: 20130116
  Receipt Date: 20130116
  Transmission Date: 20140127
  Serious: Yes (Hospitalization)
  Sender: FDA-Public Use
  Company Number: FR-B.I. PHARMACEUTICALS,INC./RIDGEFIELD-2013-FF-00092FF

PATIENT
  Age: 88 Year
  Sex: Female

DRUGS (3)
  1. MICARDIS PLUS [Suspect]
     Indication: HYPERTENSION
     Dosage: 80/12.5MG
     Route: 048
     Dates: end: 20121208
  2. PROTHIADEN [Suspect]
     Indication: DEPRESSION
     Dosage: 75 MG
     Dates: start: 20121205, end: 20121209
  3. LEXOMIL [Suspect]
     Indication: ANXIETY
     Dosage: 0.25 NR
     Route: 048
     Dates: start: 20121205, end: 20121208

REACTIONS (1)
  - Fall [Recovered/Resolved]
